FAERS Safety Report 5108027-1 (Version None)
Quarter: 2006Q3

REPORT INFORMATION
  Report Type: 
  Country: None (occurrence: None)
  Receive Date: 20060915
  Receipt Date: 20060907
  Transmission Date: 20061208
  Serious: Yes (Hospitalization, Disabling, Other)
  Sender: FDA-Public Use
  Company Number: 2006109552

PATIENT
  Sex: Male

DRUGS (2)
  1. CELEBREX [Suspect]
     Indication: DRUG USE FOR UNKNOWN INDICATION
     Dates: start: 19990201, end: 20011101
  2. VIOXX [Suspect]
     Indication: DRUG USE FOR UNKNOWN INDICATION
     Dosage: ORAL
     Route: 048
     Dates: start: 19990520, end: 19990701

REACTIONS (2)
  - DEEP VEIN THROMBOSIS [None]
  - WALKING AID USER [None]
